FAERS Safety Report 25379500 (Version 1)
Quarter: 2025Q2

REPORT INFORMATION
  Report Type: Other
  Country: CA (occurrence: CA)
  Receive Date: 20250530
  Receipt Date: 20250530
  Transmission Date: 20250716
  Serious: Yes (Death, Other)
  Sender: APOTEX
  Company Number: CA-APOTEX-2025AP004792

PATIENT
  Age: 85 Year
  Sex: Female

DRUGS (2)
  1. LENALIDOMIDE [Suspect]
     Active Substance: LENALIDOMIDE
     Indication: Plasma cell myeloma refractory
     Dosage: 5 MILLIGRAM, QD
     Route: 048
     Dates: start: 20240819
  2. FILGRASTIM [Suspect]
     Active Substance: FILGRASTIM
     Indication: Plasma cell myeloma
     Dosage: 300MCG/0.5ML, B.I.WK.
     Route: 058

REACTIONS (2)
  - Death [Fatal]
  - Supportive care [Unknown]

NARRATIVE: CASE EVENT DATE: 20250521
